FAERS Safety Report 18467547 (Version 3)
Quarter: 2020Q4

REPORT INFORMATION
  Report Type: Report from Study
  Country: ES (occurrence: ES)
  Receive Date: 20201105
  Receipt Date: 20201216
  Transmission Date: 20210114
  Serious: Yes (Hospitalization, Other)
  Sender: FDA-Public Use
  Company Number: ES-JNJFOC-A-CH2018-181244

PATIENT
  Age: 42 Year
  Sex: Male
  Weight: 79 kg

DRUGS (14)
  1. TRACLEER [Suspect]
     Active Substance: BOSENTAN
     Indication: PULMONARY ARTERIAL HYPERTENSION
     Dosage: 250 MG, QD
     Route: 048
     Dates: start: 20180907, end: 20181022
  2. TRACLEER [Suspect]
     Active Substance: BOSENTAN
     Dosage: 125 MG, QD
     Route: 048
     Dates: start: 20181029, end: 20190114
  3. TRACLEER [Suspect]
     Active Substance: BOSENTAN
     Dosage: 250 MG, QD
     Route: 048
     Dates: start: 20190114
  4. TRACLEER [Suspect]
     Active Substance: BOSENTAN
     Dosage: 125 MG, QD
     Route: 048
     Dates: start: 20180803, end: 20180907
  5. DAFLON [Concomitant]
     Indication: PERIPHERAL VENOUS DISEASE
     Dosage: UNK
     Route: 048
     Dates: start: 20090723
  6. OMEPRAZOLE. [Concomitant]
     Active Substance: OMEPRAZOLE
     Indication: PROPHYLAXIS
     Dosage: UNK
     Route: 048
     Dates: start: 20110921
  7. ALLOPURINOL. [Concomitant]
     Active Substance: ALLOPURINOL
     Indication: GOUT
     Dosage: UNK
     Route: 048
     Dates: start: 20070806
  8. ALLOPURINOL. [Concomitant]
     Active Substance: ALLOPURINOL
     Indication: RESPIRATORY FAILURE
  9. INSULINE GLULISINE [Concomitant]
     Indication: TYPE 2 DIABETES MELLITUS
     Dosage: UNK
     Route: 042
     Dates: start: 20181113, end: 20181114
  10. ENALAPRIL [Concomitant]
     Active Substance: ENALAPRIL
     Indication: HYPERTENSION
     Dosage: UNK
     Route: 048
     Dates: start: 20100925
  11. DAFLON                             /00426001/ [Concomitant]
     Active Substance: DIOSMIN
  12. OMEPRAZOLE. [Concomitant]
     Active Substance: OMEPRAZOLE
     Dosage: UNK
     Route: 048
     Dates: start: 20181113, end: 20181122
  13. ACETYLSALICYLIC ACID [Concomitant]
     Active Substance: ASPIRIN
     Indication: THROMBOSIS PROPHYLAXIS
     Dosage: UNK
     Route: 048
     Dates: start: 20130412
  14. ALLOPURINOL. [Concomitant]
     Active Substance: ALLOPURINOL
     Indication: RESPIRATORY TRACT INFECTION

REACTIONS (15)
  - Lymphocyte percentage decreased [Unknown]
  - Pain [Unknown]
  - Secretion discharge [Unknown]
  - Rhonchi [Unknown]
  - Respiratory failure [Recovered/Resolved]
  - Respiratory acidosis [Recovered/Resolved]
  - Pneumonia [Recovered/Resolved]
  - Cardiac failure [Recovered/Resolved]
  - Rales [Unknown]
  - Hypercapnia [Recovered/Resolved]
  - Oxygen saturation decreased [Recovered/Resolved]
  - Cardiac failure congestive [Not Recovered/Not Resolved]
  - Respiratory tract infection [Unknown]
  - Dyspnoea [Recovered/Resolved]
  - Respiratory failure [Not Recovered/Not Resolved]

NARRATIVE: CASE EVENT DATE: 20181008
